APPROVED DRUG PRODUCT: ERYC
Active Ingredient: ERYTHROMYCIN
Strength: 250MG
Dosage Form/Route: CAPSULE, DELAYED REL PELLETS;ORAL
Application: A062618 | Product #001
Applicant: PARKE DAVIS DIV WARNER LAMBERT CO
Approved: Sep 25, 1985 | RLD: No | RS: No | Type: DISCN